FAERS Safety Report 5107239-0 (Version None)
Quarter: 2006Q3

REPORT INFORMATION
  Report Type: 
  Country: None (occurrence: None)
  Receive Date: 20060913
  Receipt Date: 20060328
  Transmission Date: 20061208
  Serious: Yes (Hospitalization)
  Sender: FDA-Public Use
  Company Number: 2006VX000364

PATIENT
  Age: 38 Year
  Sex: Male
  Weight: 113.3993 kg

DRUGS (3)
  1. INTERFERON ALFACON-1 [Suspect]
     Indication: HEPATITIS C
     Dosage: 15 UG; QD; SC
     Route: 058
     Dates: start: 20060224
  2. RIBAVIRIN [Concomitant]
  3. LASIX [Concomitant]

REACTIONS (2)
  - CELLULITIS [None]
  - FATIGUE [None]
